FAERS Safety Report 19497328 (Version 1)
Quarter: 2021Q3

REPORT INFORMATION
  Report Type: Spontaneous
  Country: US (occurrence: US)
  Receive Date: 20210706
  Receipt Date: 20210706
  Transmission Date: 20211014
  Serious: Yes (Death)
  Sender: FDA-Public Use
  Company Number: None

PATIENT
  Age: 99 Year
  Sex: Female

DRUGS (2)
  1. IMATINIB MES [Suspect]
     Active Substance: IMATINIB MESYLATE
     Indication: METASTASES TO ABDOMINAL CAVITY
     Route: 048
     Dates: start: 20180215
  2. N/A [Concomitant]
     Active Substance: UNSPECIFIED INGREDIENT

REACTIONS (1)
  - Death [None]
